FAERS Safety Report 26050877 (Version 2)
Quarter: 2025Q4

REPORT INFORMATION
  Report Type: Spontaneous
  Country: EU (occurrence: EU)
  Receive Date: 20251116
  Receipt Date: 20251124
  Transmission Date: 20260118
  Serious: Yes (Death, Life-Threatening, Hospitalization, Other)
  Sender: TEVA
  Company Number: EU-TEVA-VS-3389607

PATIENT
  Age: 26 Year
  Sex: Female

DRUGS (15)
  1. ASPIRIN [Suspect]
     Active Substance: ASPIRIN
     Indication: Suicidal ideation
     Dosage: PILL
     Route: 048
  2. MEROPENEM [Concomitant]
     Active Substance: MEROPENEM
     Indication: Evidence based treatment
     Route: 065
  3. ACETYLCYSTEINE [Concomitant]
     Active Substance: ACETYLCYSTEINE
     Indication: Overdose
     Route: 065
  4. MIDAZOLAM [Concomitant]
     Active Substance: MIDAZOLAM
     Indication: Sedative therapy
     Dosage: REDUCED
     Route: 065
  5. PAROXETINE [Suspect]
     Active Substance: PAROXETINE
     Indication: Suicidal ideation
     Dosage: PILL
     Route: 048
  6. SUFENTANIL [Concomitant]
     Active Substance: SUFENTANIL
     Indication: Sedative therapy
     Route: 065
  7. SUFENTANIL [Concomitant]
     Active Substance: SUFENTANIL
     Indication: Sedative therapy
     Dosage: REDUCED
     Route: 065
  8. AMPICILLIN SODIUM\SULBACTAM SODIUM [Concomitant]
     Active Substance: AMPICILLIN SODIUM\SULBACTAM SODIUM
     Indication: Evidence based treatment
     Route: 065
  9. PREDNISOLONE [Suspect]
     Active Substance: PREDNISOLONE
     Indication: Acute respiratory distress syndrome
     Route: 065
  10. DEXAMETHASONE [Suspect]
     Active Substance: DEXAMETHASONE
     Indication: Acute respiratory distress syndrome
     Route: 065
  11. ACETAMINOPHEN [Suspect]
     Active Substance: ACETAMINOPHEN
     Indication: Suicidal ideation
     Dosage: PILL
     Route: 048
  12. CAFFEINE [Suspect]
     Active Substance: CAFFEINE
     Indication: Suicidal ideation
     Dosage: PILL
     Route: 048
  13. OLANZAPINE [Suspect]
     Active Substance: OLANZAPINE
     Indication: Serotonin syndrome
     Route: 065
  14. AGOMELATINE [Suspect]
     Active Substance: AGOMELATINE
     Indication: Suicidal ideation
     Dosage: PILL
     Route: 048
  15. IBUPROFEN [Suspect]
     Active Substance: IBUPROFEN
     Indication: Suicidal ideation
     Dosage: PILL
     Route: 048

REACTIONS (20)
  - Somnolence [Fatal]
  - Lung infiltration [Fatal]
  - Disorientation [Fatal]
  - Acute respiratory distress syndrome [Fatal]
  - Drug ineffective [Fatal]
  - Agitation [Fatal]
  - Tracheal injury [Fatal]
  - Mydriasis [Fatal]
  - Lividity [Fatal]
  - Delirium [Fatal]
  - Overdose [Fatal]
  - Respiratory failure [Fatal]
  - Toxicity to various agents [Fatal]
  - Serotonin syndrome [Fatal]
  - Completed suicide [Fatal]
  - Clonus [Fatal]
  - Hypotension [Fatal]
  - Tachycardia [Fatal]
  - Pyrexia [Fatal]
  - Pneumonia aspiration [Fatal]
